FAERS Safety Report 20006768 (Version 1)
Quarter: 2021Q4

REPORT INFORMATION
  Report Type: Report from Study
  Country: US (occurrence: US)
  Receive Date: 20211028
  Receipt Date: 20211028
  Transmission Date: 20220304
  Serious: Yes (Hospitalization, Other)
  Sender: FDA-Public Use
  Company Number: US-TAKEDA-US202007951

PATIENT
  Sex: Male
  Weight: 98 kg

DRUGS (18)
  1. ECALLANTIDE [Suspect]
     Active Substance: ECALLANTIDE
     Indication: Hereditary angioedema
     Dosage: 30 MILLIGRAM, PRN
     Route: 065
  2. RUCONEST [Suspect]
     Active Substance: HUMAN C1-ESTERASE INHIBITOR
     Indication: Complement deficiency disease
     Dosage: 4200 INTERNATIONAL UNIT, 3/WEEK
     Route: 042
     Dates: start: 20190521
  3. HEPARIN [Concomitant]
     Active Substance: HEPARIN SODIUM
  4. METOPROLOL SUCCINATE [Concomitant]
     Active Substance: METOPROLOL SUCCINATE
  5. PULMICORT FLEXHALER [Concomitant]
     Active Substance: BUDESONIDE
  6. ALBUTEROL SULFATE [Concomitant]
     Active Substance: ALBUTEROL SULFATE
  7. EPINEPHRINE [Concomitant]
     Active Substance: EPINEPHRINE
  8. SODIUM CHLORIDE [Concomitant]
     Active Substance: SODIUM CHLORIDE
  9. FUROSEMIDE [Concomitant]
     Active Substance: FUROSEMIDE
  10. GABAPENTIN [Concomitant]
     Active Substance: GABAPENTIN
  11. STERILE WATER [Concomitant]
     Active Substance: WATER
  12. SINGULAIR [Concomitant]
     Active Substance: MONTELUKAST SODIUM
  13. OXYGEN [Concomitant]
     Active Substance: OXYGEN
  14. OXYCODONE HYDROCHLORIDE [Concomitant]
     Active Substance: OXYCODONE HYDROCHLORIDE
  15. MORPHINE SULFATE [Concomitant]
     Active Substance: MORPHINE SULFATE
  16. ELIQUIS [Concomitant]
     Active Substance: APIXABAN
  17. DILTIAZEM [Concomitant]
     Active Substance: DILTIAZEM
  18. PANTOPRAZOLE SODIUM [Concomitant]
     Active Substance: PANTOPRAZOLE SODIUM

REACTIONS (1)
  - Hospitalisation [Not Recovered/Not Resolved]
